FAERS Safety Report 20859148 (Version 2)
Quarter: 2022Q2

REPORT INFORMATION
  Report Type: Spontaneous
  Country: GB (occurrence: GB)
  Receive Date: 20220523
  Receipt Date: 20220601
  Transmission Date: 20220721
  Serious: Yes (Other)
  Sender: FDA-Public Use
  Company Number: GB-AUROBINDO-AUR-APL-2022-018104

PATIENT
  Age: 45 Year
  Sex: Female

DRUGS (2)
  1. IMATINIB [Suspect]
     Active Substance: IMATINIB
     Indication: Chordoma
     Dosage: UNK
     Route: 065
     Dates: start: 201905
  2. IMATINIB [Suspect]
     Active Substance: IMATINIB
     Indication: Metastases to pancreas

REACTIONS (2)
  - Disease progression [Unknown]
  - Off label use [Unknown]
